FAERS Safety Report 8375555-5 (Version None)
Quarter: 2012Q1

REPORT INFORMATION
  Report Type: 
  Country: None (occurrence: None)
  Receive Date: 20120323
  Receipt Date: 20110210
  Transmission Date: 20120608
  Serious: Yes (Other)
  Sender: FDA-Public Use
  Company Number: 163-21880-11020856

PATIENT
  Age: 58 Year
  Sex: Male
  Weight: 95.9 kg

DRUGS (17)
  1. THALOMID [Suspect]
     Indication: MULTIPLE MYELOMA
     Dosage: 50 MG, 1 IN 1 D, PO, 100 MG, 1 IN 1 D, PO, 50 MG, 1 IN 1 D, PO
     Route: 048
     Dates: start: 20100501, end: 20101001
  2. THALOMID [Suspect]
     Indication: MULTIPLE MYELOMA
     Dosage: 50 MG, 1 IN 1 D, PO, 100 MG, 1 IN 1 D, PO, 50 MG, 1 IN 1 D, PO
     Route: 048
     Dates: start: 20100401, end: 20100501
  3. THALOMID [Suspect]
     Indication: MULTIPLE MYELOMA
     Dosage: 50 MG, 1 IN 1 D, PO, 100 MG, 1 IN 1 D, PO, 50 MG, 1 IN 1 D, PO
     Route: 048
     Dates: start: 20101001, end: 20101201
  4. PREDNISONE TAB [Concomitant]
  5. SIMVASTATIN [Concomitant]
  6. EFFEXOR [Concomitant]
  7. AREDIA [Concomitant]
  8. PRILOSEC [Concomitant]
  9. CRESTOR [Concomitant]
  10. REVLIMID [Suspect]
     Indication: MULTIPLE MYELOMA
     Dosage: 25 MG, QHS FOR 21 DAYS, 1 WEEK OFF, PO
     Route: 048
     Dates: start: 20091209
  11. ASTEPRO (AZELASTINE HYDROCHLORIDE) (SPRAY (NOT INHALATION)) [Concomitant]
  12. ASPIRIN [Concomitant]
  13. CALCIUM +D (OS-CAL) [Concomitant]
  14. ATIVAN [Concomitant]
  15. FLONASE (FLUTICASONE PROPIONATE) (SPRAY (NOT INHALATION)) [Concomitant]
  16. LEVOTHYROXINE SODIUM [Concomitant]
  17. ZOLOFT [Concomitant]

REACTIONS (6)
  - DIZZINESS [None]
  - DYSPNOEA [None]
  - FATIGUE [None]
  - CARDIAC FAILURE CONGESTIVE [None]
  - SLEEP DISORDER [None]
  - NEUROPATHY PERIPHERAL [None]
